FAERS Safety Report 17460253 (Version 1)
Quarter: 2020Q1

REPORT INFORMATION
  Report Type: Spontaneous
  Country: US (occurrence: US)
  Receive Date: 20200226
  Receipt Date: 20200226
  Transmission Date: 20200409
  Serious: No
  Sender: FDA-Public Use
  Company Number: US-PFIZER INC-2020084357

PATIENT
  Age: 69 Year
  Sex: Female

DRUGS (21)
  1. ALCOHOL. [Suspect]
     Active Substance: ALCOHOL
     Dosage: UNK
  2. MORPHINE SULFATE. [Suspect]
     Active Substance: MORPHINE SULFATE
     Dosage: UNK
  3. CYMBALTA [Suspect]
     Active Substance: DULOXETINE HYDROCHLORIDE
     Dosage: UNK
  4. NORTRIPTYLINE [Suspect]
     Active Substance: NORTRIPTYLINE
     Dosage: UNK
  5. LIPITOR [Suspect]
     Active Substance: ATORVASTATIN CALCIUM
     Dosage: UNK
  6. BACLOFEN. [Suspect]
     Active Substance: BACLOFEN
     Dosage: UNK
  7. NIACIN. [Suspect]
     Active Substance: NIACIN
     Dosage: UNK
  8. FENOFIBRATE. [Suspect]
     Active Substance: FENOFIBRATE
     Dosage: UNK
  9. DILAUDID [Suspect]
     Active Substance: HYDROMORPHONE HYDROCHLORIDE
     Dosage: UNK
  10. ATENOLOL. [Suspect]
     Active Substance: ATENOLOL
     Dosage: UNK
  11. PREDNISONE. [Suspect]
     Active Substance: PREDNISONE
     Dosage: UNK
  12. VIOXX [Suspect]
     Active Substance: ROFECOXIB
     Dosage: UNK
  13. VICODIN [Suspect]
     Active Substance: ACETAMINOPHEN\HYDROCODONE BITARTRATE
     Dosage: UNK
  14. NICKEL [Suspect]
     Active Substance: NICKEL
     Dosage: UNK
  15. CELECOXIB. [Suspect]
     Active Substance: CELECOXIB
     Dosage: UNK
  16. CITALOPRAM HYDROBROMIDE. [Suspect]
     Active Substance: CITALOPRAM HYDROBROMIDE
     Dosage: UNK
  17. LISINOPRIL. [Suspect]
     Active Substance: LISINOPRIL
     Dosage: UNK
  18. SAVELLA [Suspect]
     Active Substance: MILNACIPRAN HYDROCHLORIDE
     Dosage: UNK
  19. CLOFIBRATE [Suspect]
     Active Substance: CLOFIBRATE
     Dosage: UNK
  20. CODEINE [Suspect]
     Active Substance: CODEINE
     Dosage: UNK
  21. GLUTEN [Suspect]
     Active Substance: WHEAT GLUTEN
     Dosage: UNK

REACTIONS (1)
  - Drug hypersensitivity [Unknown]
